FAERS Safety Report 7290506-2 (Version None)
Quarter: 2011Q1

REPORT INFORMATION
  Report Type: 
  Country: None (occurrence: None)
  Receive Date: 20110214
  Receipt Date: 20110209
  Transmission Date: 20110831
  Serious: Yes (Other)
  Sender: FDA-Public Use
  Company Number: US-PFIZER INC-2011029692

PATIENT
  Sex: Male

DRUGS (2)
  1. BROMPHENIRAMINE [Concomitant]
     Dosage: UNK
  2. LYRICA [Suspect]
     Indication: COMPLEX PARTIAL SEIZURES
     Dosage: 1200 MG, DAILY
     Route: 048

REACTIONS (2)
  - MEDICATION ERROR [None]
  - CONVULSION [None]
